FAERS Safety Report 6568862-X (Version None)
Quarter: 2010Q1

REPORT INFORMATION
  Report Type: 
  Country: None (occurrence: None)
  Receive Date: 20100203
  Receipt Date: 20100122
  Transmission Date: 20100710
  Serious: Yes (Other)
  Sender: FDA-Public Use
  Company Number: JP-BAYER-1198710386

PATIENT
  Age: 26 Year
  Sex: Female
  Weight: 50 kg

DRUGS (3)
  1. NIFEDIPINE [Suspect]
     Indication: HYPERTENSION
     Route: 054
  2. MANNITOL [Concomitant]
     Indication: DRUG USE FOR UNKNOWN INDICATION
  3. FRUSEMIDE [Concomitant]
     Indication: DRUG USE FOR UNKNOWN INDICATION

REACTIONS (3)
  - HYPOTENSION [None]
  - INTRA-UTERINE DEATH [None]
  - TACHYCARDIA [None]
